FAERS Safety Report 16774303 (Version 1)
Quarter: 2019Q3

REPORT INFORMATION
  Report Type: Spontaneous
  Country: BE (occurrence: BE)
  Receive Date: 20190905
  Receipt Date: 20190905
  Transmission Date: 20191005
  Serious: Yes (Other)
  Sender: FDA-Public Use
  Company Number: BE-ROCHE-2385743

PATIENT
  Age: 47 Year
  Sex: Female

DRUGS (6)
  1. RITUXIMAB. [Suspect]
     Active Substance: RITUXIMAB
     Dosage: 4 CYCLES R-CHOP
     Route: 042
     Dates: start: 201902
  2. CHOP [Suspect]
     Active Substance: CYCLOPHOSPHAMIDE\DOXORUBICIN\PREDNISONE\VINCRISTINE
     Indication: NON-HODGKIN^S LYMPHOMA
     Route: 042
     Dates: start: 201902
  3. RITUXIMAB. [Suspect]
     Active Substance: RITUXIMAB
     Indication: NON-HODGKIN^S LYMPHOMA
     Dosage: 8 CYCLES R-CVP
     Route: 042
     Dates: start: 201808
  4. PREDNISONE. [Suspect]
     Active Substance: PREDNISONE
     Indication: NON-HODGKIN^S LYMPHOMA
     Route: 042
     Dates: start: 201808
  5. VINCRISTINE SULFATE. [Suspect]
     Active Substance: VINCRISTINE SULFATE
     Indication: NON-HODGKIN^S LYMPHOMA
     Route: 042
     Dates: start: 201808
  6. CYCLOPHOSPHAMIDE. [Suspect]
     Active Substance: CYCLOPHOSPHAMIDE
     Indication: NON-HODGKIN^S LYMPHOMA
     Route: 042
     Dates: start: 201808

REACTIONS (4)
  - Respiratory failure [Unknown]
  - Lung infection [Unknown]
  - Haemodynamic instability [Unknown]
  - Pulmonary sepsis [Unknown]

NARRATIVE: CASE EVENT DATE: 2019
